FAERS Safety Report 5525637-8 (Version None)
Quarter: 2007Q4

REPORT INFORMATION
  Report Type: 
  Country: None (occurrence: None)
  Receive Date: 20071120
  Receipt Date: 20071120
  Transmission Date: 20080405
  Serious: Yes (Hospitalization, Other)
  Sender: FDA-Public Use
  Company Number: None

PATIENT
  Age: 25 Year
  Sex: Female
  Weight: 65.7716 kg

DRUGS (1)
  1. COMPAZINE [Suspect]
     Indication: MIGRAINE
     Dosage: 10 MG IV  1  IV  (DURATION: ONE TIME)
     Route: 042

REACTIONS (5)
  - AGGRESSION [None]
  - FEELING ABNORMAL [None]
  - NERVOUSNESS [None]
  - PANIC REACTION [None]
  - SCREAMING [None]
